FAERS Safety Report 6184712-8 (Version None)
Quarter: 2009Q2

REPORT INFORMATION
  Report Type: 
  Country: None (occurrence: None)
  Receive Date: 20090508
  Receipt Date: 20090501
  Transmission Date: 20091009
  Serious: Yes (Other)
  Sender: FDA-Public Use
  Company Number: US-JNJCH-2009012274

PATIENT
  Sex: Female

DRUGS (1)
  1. COOL MINT LISTERINE POCKETMIST [Suspect]
     Indication: DRUG USE FOR UNKNOWN INDICATION
     Dosage: TEXT:SPRAYED 30 TIMES
     Route: 048

REACTIONS (1)
  - HAEMOPTYSIS [None]
